FAERS Safety Report 8785446 (Version 1)
Quarter: 2012Q4

REPORT INFORMATION
  Report Type: 
  Country: JP (occurrence: JP)
  Receive Date: 20120914
  Receipt Date: 20120914
  Transmission Date: 20130627
  Serious: Yes (Hospitalization)
  Sender: FDA-Public Use
  Company Number: JP-ELI_LILLY_AND_COMPANY-JP201204005804

PATIENT
  Age: 82 Year
  Sex: Male

DRUGS (2)
  1. FORTEO [Suspect]
     Dosage: UNK
     Route: 058
     Dates: start: 20120316, end: 201208
  2. ANTIHYPERTENSIVES [Concomitant]
     Indication: HYPERTENSION

REACTIONS (9)
  - Delirium [Recovered/Resolved]
  - Dyspnoea [Recovered/Resolved]
  - Blood potassium increased [Recovered/Resolved]
  - Poor peripheral circulation [Recovered/Resolved]
  - Malaise [Unknown]
  - Fatigue [Unknown]
  - Pyrexia [Recovered/Resolved]
  - Nasopharyngitis [Recovered/Resolved]
  - Malaise [Recovered/Resolved]
